FAERS Safety Report 7075356-4 (Version None)
Quarter: 2010Q4

REPORT INFORMATION
  Report Type: 
  Country: None (occurrence: None)
  Receive Date: 20101030
  Receipt Date: 20100830
  Transmission Date: 20110411
  Serious: No
  Sender: FDA-Public Use
  Company Number: US-WYE-H17063210

PATIENT
  Age: 60 Year
  Sex: Male
  Weight: 136.2 kg

DRUGS (3)
  1. ADVIL PM [Suspect]
     Indication: ARTHRALGIA
     Dosage: 2 TO 3 CAPLETS AS NEEDED AT BEDTIME
     Route: 048
     Dates: end: 20100817
  2. GLIMEPIRIDE [Concomitant]
  3. METFORMIN [Concomitant]

REACTIONS (2)
  - DRUG INEFFECTIVE [None]
  - OVERDOSE [None]
